FAERS Safety Report 7935344 (Version 2)
Quarter: 2013Q4

REPORT INFORMATION
  Report Type: Report from Study
  Country: AU (occurrence: AU)
  Receive Date: 20110509
  Receipt Date: 20131115
  Transmission Date: 20140711
  Serious: Yes (Death, Other)
  Sender: FDA-Public Use
  Company Number: AU-ROCHE-735915

PATIENT
  Age: 66 Year
  Sex: Female

DRUGS (5)
  1. TRASTUZUMAB [Suspect]
     Indication: BREAST CANCER
     Dosage: LOADING DOSE.
     Route: 042
  2. TRASTUZUMAB [Suspect]
     Route: 042
     Dates: start: 20091009
  3. TRASTUZUMAB [Suspect]
     Route: 042
     Dates: start: 20100514, end: 20100827
  4. LAPATINIB [Suspect]
     Indication: BREAST CANCER
     Dosage: THERAPY DURATION: 50 DAYS
     Route: 048
     Dates: start: 20100210, end: 20100331
  5. DOCETAXEL [Suspect]
     Indication: BREAST CANCER
     Dosage: FOUR DOSES
     Route: 042

REACTIONS (2)
  - Death [Fatal]
  - Left ventricular dysfunction [Not Recovered/Not Resolved]
